FAERS Safety Report 4707955-6 (Version None)
Quarter: 2005Q3

REPORT INFORMATION
  Report Type: 
  Country: None (occurrence: None)
  Receive Date: 20050707
  Receipt Date: 20050414
  Transmission Date: 20060218
  Serious: Yes (Other)
  Sender: FDA-Public Use
  Company Number: 200511190JP

PATIENT
  Age: 54 Year
  Sex: Male

DRUGS (11)
  1. KETEK [Suspect]
     Indication: BRONCHITIS ACUTE
     Route: 048
     Dates: start: 20050323, end: 20050323
  2. LYSOZYME HYDROCHLORIDE [Concomitant]
     Indication: INFLAMMATION
     Route: 048
     Dates: start: 20050315
  3. LYSOZYME HYDROCHLORIDE [Concomitant]
     Indication: RESPIRATORY DISORDER
     Route: 048
     Dates: start: 20050315
  4. LOXOMARIN [Concomitant]
     Indication: INFLAMMATION
     Route: 048
     Dates: start: 20050315
  5. LOXOMARIN [Concomitant]
     Indication: RESPIRATORY DISORDER
     Route: 048
     Dates: start: 20050315
  6. SISAAL [Concomitant]
     Indication: INFLAMMATION
     Route: 048
     Dates: start: 20050318
  7. SISAAL [Concomitant]
     Indication: RESPIRATORY DISORDER
     Route: 048
     Dates: start: 20050318
  8. MEIACT [Concomitant]
     Indication: INFLAMMATION
     Route: 048
     Dates: start: 20050315, end: 20050321
  9. MEIACT [Concomitant]
     Indication: RESPIRATORY DISORDER
     Route: 048
     Dates: start: 20050315, end: 20050321
  10. CODEINE PHOSPHATE [Concomitant]
     Indication: INFLAMMATION
     Route: 048
     Dates: start: 20050322
  11. CODEINE PHOSPHATE [Concomitant]
     Indication: RESPIRATORY DISORDER
     Route: 048
     Dates: start: 20050322

REACTIONS (4)
  - ASTHENIA [None]
  - DEPRESSED LEVEL OF CONSCIOUSNESS [None]
  - FEELING ABNORMAL [None]
  - LIVER DISORDER [None]
